FAERS Safety Report 10221641 (Version 1)
Quarter: 2014Q2

REPORT INFORMATION
  Report Type: Spontaneous
  Country: US (occurrence: None)
  Receive Date: 20140605
  Receipt Date: 20140605
  Transmission Date: 20141212
  Serious: Yes (Other)
  Sender: FDA-Public Use
  Company Number: None

PATIENT
  Age: 62 Year
  Sex: Female

DRUGS (1)
  1. STELARA [Suspect]
     Indication: PSORIATIC ARTHROPATHY
     Dosage: 45MG EVERY 4 WEEKS SQ
     Route: 058
     Dates: start: 20140509, end: 20140603

REACTIONS (3)
  - Cough [None]
  - Myalgia [None]
  - Myalgia [None]
